FAERS Safety Report 7569137-2 (Version None)
Quarter: 2011Q2

REPORT INFORMATION
  Report Type: 
  Country: None (occurrence: None)
  Receive Date: 20110623
  Receipt Date: 20110617
  Transmission Date: 20111010
  Serious: Yes (Life-Threatening)
  Sender: FDA-Public Use
  Company Number: AR-MEDIMMUNE-MEDI-0013271

PATIENT
  Sex: Male
  Weight: 4.365 kg

DRUGS (3)
  1. VITAMIN A C D [Concomitant]
     Dates: start: 20110218, end: 20110505
  2. SYNAGIS [Suspect]
     Route: 030
     Dates: start: 20110519, end: 20110519
  3. FERROUS SULFATE TAB [Concomitant]
     Dates: start: 20110218, end: 20110509

REACTIONS (3)
  - APPARENT LIFE THREATENING EVENT [None]
  - LOSS OF CONSCIOUSNESS [None]
  - APNOEA [None]
